FAERS Safety Report 9714201 (Version 1)
Quarter: 2013Q4

REPORT INFORMATION
  Report Type: Spontaneous
  Country: US (occurrence: US)
  Receive Date: 20131126
  Receipt Date: 20131126
  Transmission Date: 20140711
  Serious: No
  Sender: FDA-Public Use
  Company Number: US-GILEAD-2008-0019340

PATIENT
  Sex: Male
  Weight: 71.67 kg

DRUGS (14)
  1. LETAIRIS [Suspect]
     Indication: PULMONARY ARTERIAL HYPERTENSION
     Route: 048
     Dates: start: 20081119
  2. LASIX [Concomitant]
  3. COREG [Concomitant]
  4. DIOVAN [Concomitant]
  5. ALDACTONE [Concomitant]
  6. NITROGLYCERIN [Concomitant]
  7. PLAVIX [Concomitant]
  8. LIPITOR [Concomitant]
  9. LANTUS [Concomitant]
  10. ASPIRIN [Concomitant]
  11. NIACIN [Concomitant]
  12. MAGNESIUM OXIDE [Concomitant]
  13. COLACE [Concomitant]
  14. MULTIVITAMIN [Concomitant]

REACTIONS (1)
  - Fluid retention [None]
